FAERS Safety Report 9103081 (Version 1)
Quarter: 2013Q1

REPORT INFORMATION
  Report Type: Spontaneous
  Country: ES (occurrence: ES)
  Receive Date: 20130219
  Receipt Date: 20130219
  Transmission Date: 20140127
  Serious: Yes (Hospitalization)
  Sender: FDA-Public Use
  Company Number: ES-ELI_LILLY_AND_COMPANY-ES201302003062

PATIENT
  Sex: Female

DRUGS (1)
  1. FORSTEO [Suspect]
     Indication: OSTEOPOROSIS
     Dosage: 20 UG, QD
     Route: 058
     Dates: start: 20130118

REACTIONS (4)
  - Hypersensitivity [Unknown]
  - Swelling face [Unknown]
  - Hypoaesthesia oral [Unknown]
  - Lip swelling [Unknown]
